FAERS Safety Report 16821678 (Version 1)
Quarter: 2019Q3

REPORT INFORMATION
  Report Type: Spontaneous
  Country: DE (occurrence: DE)
  Receive Date: 20190918
  Receipt Date: 20190918
  Transmission Date: 20191005
  Serious: Yes (Hospitalization, Other)
  Sender: FDA-Public Use
  Company Number: DE-EMD SERONO-E2B_90070704

PATIENT
  Age: 41 Year
  Sex: Female

DRUGS (4)
  1. CETROTIDE [Suspect]
     Active Substance: CETRORELIX ACETATE
     Indication: ASSISTED REPRODUCTIVE TECHNOLOGY
     Dosage: APPLICATION ON CYCLE DAY 6-10
  2. OVALEAP [Suspect]
     Active Substance: FOLLITROPIN
     Indication: ASSISTED REPRODUCTIVE TECHNOLOGY
     Dosage: APPLICATION ON CYCLE DAY 2-9
  3. OVITRELLE [Suspect]
     Active Substance: CHORIOGONADOTROPIN ALFA
     Indication: ASSISTED REPRODUCTIVE TECHNOLOGY
     Dosage: APPLICATION ON CYCLE DAY 11
  4. DUPHASTON [Suspect]
     Active Substance: DYDROGESTERONE
     Indication: ASSISTED REPRODUCTIVE TECHNOLOGY
     Dosage: APPLICATION FROM CYCLE DAY 13

REACTIONS (1)
  - Intra-abdominal haemorrhage [Not Recovered/Not Resolved]

NARRATIVE: CASE EVENT DATE: 20190902
